FAERS Safety Report 20483975 (Version 5)
Quarter: 2022Q2

REPORT INFORMATION
  Report Type: Spontaneous
  Country: US (occurrence: US)
  Receive Date: 20220217
  Receipt Date: 20220429
  Transmission Date: 20220721
  Serious: No
  Sender: FDA-Public Use
  Company Number: US-UNITED THERAPEUTICS-UNT-2022-002952

PATIENT
  Age: 36 Year
  Sex: Female
  Weight: 51.701 kg

DRUGS (4)
  1. REMODULIN [Suspect]
     Active Substance: TREPROSTINIL
     Indication: Pulmonary arterial hypertension
     Dosage: UNK, CONTINUING
     Route: 058
     Dates: start: 20211123
  2. REMODULIN [Suspect]
     Active Substance: TREPROSTINIL
     Dosage: 0.030 ?G/KG, CONTINUING
     Route: 058
  3. REMODULIN [Suspect]
     Active Substance: TREPROSTINIL
     Dosage: UNK
     Route: 058
  4. LETAIRIS [Concomitant]
     Active Substance: AMBRISENTAN
     Indication: Product used for unknown indication
     Dosage: UNK
     Route: 065

REACTIONS (15)
  - Infusion site discharge [Unknown]
  - Dermatitis contact [Not Recovered/Not Resolved]
  - Hypersensitivity [Not Recovered/Not Resolved]
  - Infusion site discolouration [Unknown]
  - Infusion site pain [Recovering/Resolving]
  - Infusion site rash [Unknown]
  - Infusion site extravasation [Unknown]
  - Dyspnoea [Unknown]
  - Asthenia [Unknown]
  - Device failure [Unknown]
  - Device infusion issue [Unknown]
  - Drug intolerance [Unknown]
  - Device kink [Unknown]
  - Skin disorder [Unknown]
  - Infusion site irritation [Unknown]

NARRATIVE: CASE EVENT DATE: 20220301
